FAERS Safety Report 20364080 (Version 1)
Quarter: 2022Q1

REPORT INFORMATION
  Report Type: Spontaneous
  Country: JP (occurrence: JP)
  Receive Date: 20220121
  Receipt Date: 20220121
  Transmission Date: 20220423
  Serious: Yes (Hospitalization, Other)
  Sender: FDA-Public Use
  Company Number: JP-ONO-2022JP001338

PATIENT
  Age: 53 Year
  Sex: Male
  Weight: 40.9 kg

DRUGS (4)
  1. OPDIVO [Suspect]
     Active Substance: NIVOLUMAB
     Indication: Head and neck cancer
     Dosage: 240 MILLIGRAM
     Route: 041
     Dates: start: 20200206, end: 20200221
  2. CARBOHYDRATES\FATTY ACIDS\MINERALS\PROTEIN\VITAMINS [Concomitant]
     Active Substance: CARBOHYDRATES\FATTY ACIDS\MINERALS\PROTEIN\VITAMINS
     Indication: Product used for unknown indication
     Dosage: UNK
     Route: 065
  3. HEPARINOID [Concomitant]
     Indication: Product used for unknown indication
     Dosage: UNK
     Route: 065
  4. PENTOSAN POLYSULFATE SODIUM [Concomitant]
     Active Substance: PENTOSAN POLYSULFATE SODIUM
     Indication: Product used for unknown indication
     Dosage: UNK
     Route: 061

REACTIONS (1)
  - Pulmonary toxicity [Recovered/Resolved]

NARRATIVE: CASE EVENT DATE: 20200309
